FAERS Safety Report 14457050 (Version 1)
Quarter: 2018Q1

REPORT INFORMATION
  Report Type: Spontaneous
  Country: US (occurrence: US)
  Receive Date: 20180130
  Receipt Date: 20180130
  Transmission Date: 20180509
  Serious: Yes (Other)
  Sender: FDA-Public Use
  Company Number: US-TEVA-2018-US-852738

PATIENT

DRUGS (1)
  1. PROCTO-MED HC [Suspect]
     Active Substance: HYDROCORTISONE
     Route: 065

REACTIONS (3)
  - Haematochezia [Unknown]
  - Thermal burn [Unknown]
  - Application site irritation [Unknown]
